FAERS Safety Report 12948411 (Version 1)
Quarter: 2016Q4

REPORT INFORMATION
  Report Type: Spontaneous
  Country: US (occurrence: US)
  Receive Date: 20161116
  Receipt Date: 20161116
  Transmission Date: 20170207
  Serious: No
  Sender: FDA-Public Use
  Company Number: US-BAUSCH-BL-2016-011929

PATIENT
  Age: 81 Year
  Sex: Female

DRUGS (3)
  1. LOTEMAX [Suspect]
     Active Substance: LOTEPREDNOL ETABONATE
     Indication: EYE PRURITUS
     Route: 047
     Dates: start: 201604
  2. LOTEMAX [Suspect]
     Active Substance: LOTEPREDNOL ETABONATE
     Route: 047
     Dates: start: 20160514, end: 20160515
  3. LOTEMAX [Suspect]
     Active Substance: LOTEPREDNOL ETABONATE
     Indication: POSTOPERATIVE CARE
     Route: 047
     Dates: start: 2015

REACTIONS (5)
  - Eye irritation [Recovered/Resolved]
  - Eye pain [Recovered/Resolved]
  - Visual impairment [Not Recovered/Not Resolved]
  - Ocular hyperaemia [Recovered/Resolved]
  - Photophobia [Recovered/Resolved]

NARRATIVE: CASE EVENT DATE: 201605
